FAERS Safety Report 5585258-8 (Version None)
Quarter: 2008Q1

REPORT INFORMATION
  Report Type: 
  Country: None (occurrence: None)
  Receive Date: 20080108
  Receipt Date: 20080108
  Transmission Date: 20080703
  Serious: Yes (Other)
  Sender: FDA-Public Use
  Company Number: None

PATIENT
  Age: 61 Year
  Sex: Female

DRUGS (10)
  1. REBIF [Suspect]
     Dates: start: 20020322, end: 20070221
  2. HYDROCHLORATHIAZIDE [Concomitant]
  3. FOSAMAX [Concomitant]
  4. PREVACID [Concomitant]
  5. VALIUM [Concomitant]
  6. RANITIDINE [Concomitant]
  7. CIPROFLOXACIN [Concomitant]
  8. CALCIUM GLUCONATE [Concomitant]
  9. VITAMIN D [Concomitant]
  10. OMEGA 3 [Concomitant]

REACTIONS (3)
  - ALANINE AMINOTRANSFERASE INCREASED [None]
  - ASPARTATE AMINOTRANSFERASE INCREASED [None]
  - HEADACHE [None]
